FAERS Safety Report 12626180 (Version 1)
Quarter: 2016Q3

REPORT INFORMATION
  Report Type: Spontaneous
  Country: US (occurrence: US)
  Receive Date: 20160805
  Receipt Date: 20160805
  Transmission Date: 20161109
  Serious: Yes (Other)
  Sender: FDA-Public Use
  Company Number: US-BAYER-2016-146823

PATIENT
  Age: 20 Year
  Sex: Female

DRUGS (1)
  1. MIRENA [Suspect]
     Active Substance: LEVONORGESTREL
     Indication: CONTRACEPTION
     Dosage: 20 MCG/24HR, CONT
     Route: 015
     Dates: start: 20160726

REACTIONS (5)
  - Device physical property issue [None]
  - Stress [None]
  - Device dislocation [None]
  - Device use issue [None]
  - Procedural pain [Recovered/Resolved]

NARRATIVE: CASE EVENT DATE: 201607
